FAERS Safety Report 10740901 (Version 2)
Quarter: 2015Q1

REPORT INFORMATION
  Report Type: Spontaneous
  Country: IT (occurrence: None)
  Receive Date: 20150123
  Receipt Date: 20150205
  Transmission Date: 20150721
  Serious: Yes (Hospitalization)
  Sender: FDA-Public Use
  Company Number: 2708337

PATIENT
  Age: 52 Year
  Sex: Female

DRUGS (4)
  1. DOCETAXEL. [Suspect]
     Active Substance: DOCETAXEL
     Indication: LUNG NEOPLASM MALIGNANT
     Dosage: CYCLICAL
     Dates: start: 20150112, end: 20150112
  2. RANITIDINE [Concomitant]
     Active Substance: RANITIDINE\RANITIDINE HYDROCHLORIDE
  3. SOLDESAM [Concomitant]
     Active Substance: DEXAMETHASONE
  4. ENTACT [Concomitant]
     Active Substance: ESCITALOPRAM OXALATE

REACTIONS (6)
  - Skin discolouration [None]
  - Back pain [None]
  - Rash [None]
  - Headache [None]
  - Burning sensation [None]
  - Erythema [None]

NARRATIVE: CASE EVENT DATE: 20150112
